FAERS Safety Report 22340743 (Version 2)
Quarter: 2023Q2

REPORT INFORMATION
  Report Type: Spontaneous
  Country: US (occurrence: US)
  Receive Date: 20230518
  Receipt Date: 20230612
  Transmission Date: 20230721
  Serious: Yes (Other)
  Sender: FDA-Public Use
  Company Number: US-JAZZ PHARMACEUTICALS-2023-US-005078

PATIENT
  Age: 23 Year
  Sex: Male

DRUGS (2)
  1. XYREM [Suspect]
     Active Substance: SODIUM OXYBATE
     Indication: Narcolepsy
     Dosage: UNK
  2. ALCOHOL [Suspect]
     Active Substance: ALCOHOL
     Indication: Product used for unknown indication

REACTIONS (9)
  - Hallucination [Recovered/Resolved]
  - Depressed level of consciousness [Recovered/Resolved]
  - Contraindicated product administered [Unknown]
  - Acidosis [Recovered/Resolved]
  - Ataxia [Recovered/Resolved]
  - Confusional state [Recovered/Resolved]
  - Muscle contractions involuntary [Recovered/Resolved]
  - Tachypnoea [Recovered/Resolved]
  - Intentional product misuse [Unknown]
